FAERS Safety Report 7624845-X (Version None)
Quarter: 2011Q3

REPORT INFORMATION
  Report Type: 
  Country: None (occurrence: None)
  Receive Date: 20110720
  Receipt Date: 20110713
  Transmission Date: 20111222
  Serious: Yes (Life-Threatening, Other)
  Sender: FDA-Public Use
  Company Number: FR-ABBOTT-11P-056-0838708-00

PATIENT
  Sex: Female

DRUGS (2)
  1. LENOGRASTIM [Suspect]
     Indication: AGRANULOCYTOSIS
     Dosage: 34 MILLIONS IU
     Route: 058
     Dates: start: 20110527, end: 20110530
  2. VERCYTE [Suspect]
     Indication: POLYCYTHAEMIA VERA
     Route: 048
     Dates: end: 20110526

REACTIONS (5)
  - THROMBOCYTOPENIA [None]
  - BONE MARROW NECROSIS [None]
  - LEUKOPENIA [None]
  - AGRANULOCYTOSIS [None]
  - ANAEMIA [None]
